FAERS Safety Report 20700984 (Version 5)
Quarter: 2022Q2

REPORT INFORMATION
  Report Type: Report from Study
  Country: SG (occurrence: SG)
  Receive Date: 20220412
  Receipt Date: 20220524
  Transmission Date: 20220720
  Serious: Yes (Other)
  Sender: FDA-Public Use
  Company Number: SG-NOVARTISPH-NVSC2022SG079795

PATIENT
  Age: 56 Year
  Sex: Female
  Weight: 59 kg

DRUGS (21)
  1. NIS-793 [Suspect]
     Active Substance: NIS-793
     Indication: Colorectal cancer metastatic
     Dosage: 2100 MG, ONCE/SINGLE
     Route: 042
     Dates: start: 20220323, end: 20220323
  2. NIS-793 [Suspect]
     Active Substance: NIS-793
     Dosage: 2100 MG, Q4W
     Route: 042
     Dates: start: 20220420
  3. IRINOTECAN [Suspect]
     Active Substance: IRINOTECAN
     Indication: Colorectal cancer metastatic
     Dosage: 286 MG, ONCE/SINGLE
     Route: 042
     Dates: start: 20220323, end: 20220323
  4. IRINOTECAN [Suspect]
     Active Substance: IRINOTECAN
     Dosage: 214 MG, Q2W
     Route: 042
     Dates: start: 20220420
  5. FLUOROURACIL [Suspect]
     Active Substance: FLUOROURACIL
     Indication: Colorectal cancer metastatic
     Dosage: 636 MG, ONCE/SINGLE
     Route: 042
     Dates: start: 20220323, end: 20220323
  6. FLUOROURACIL [Suspect]
     Active Substance: FLUOROURACIL
     Dosage: 477 MG, Q2W
     Route: 042
     Dates: start: 20220420
  7. BEVACIZUMAB [Suspect]
     Active Substance: BEVACIZUMAB
     Indication: Colorectal cancer metastatic
     Dosage: 292 MG, ONCE/SINGLE
     Route: 042
     Dates: start: 20220323, end: 20220323
  8. BEVACIZUMAB [Suspect]
     Active Substance: BEVACIZUMAB
     Dosage: 292 MG, Q2W
     Route: 042
     Dates: start: 20220420
  9. METOCLOPRAMIDE [Concomitant]
     Active Substance: METOCLOPRAMIDE
     Indication: Nausea
     Dosage: UNK
     Route: 065
     Dates: start: 20220323, end: 20220326
  10. METOCLOPRAMIDE [Concomitant]
     Active Substance: METOCLOPRAMIDE
     Indication: Prophylaxis of nausea and vomiting
     Dosage: UNK
     Route: 065
     Dates: start: 20220327, end: 20220330
  11. LIDOCAINE HYDROCHLORIDE [Concomitant]
     Active Substance: LIDOCAINE HYDROCHLORIDE
     Indication: Local anaesthesia
     Dosage: UNK
     Route: 065
     Dates: start: 20220318, end: 20220318
  12. LIDOCAINE HYDROCHLORIDE [Concomitant]
     Active Substance: LIDOCAINE HYDROCHLORIDE
     Dosage: UNK
     Route: 065
     Dates: start: 20220321, end: 20220321
  13. ATROPINE SULFATE [Concomitant]
     Active Substance: ATROPINE SULFATE
     Indication: Prophylaxis
     Dosage: UNK
     Route: 065
     Dates: start: 20220323, end: 20220323
  14. DEXAMETHASONE PHOSPHATE [Concomitant]
     Active Substance: DEXAMETHASONE PHOSPHATE
     Indication: Prophylaxis
     Dosage: UNK
     Route: 065
     Dates: start: 20220323, end: 20220323
  15. ONDANSETRON [Concomitant]
     Active Substance: ONDANSETRON
     Indication: Prophylaxis of nausea and vomiting
     Dosage: UNK
     Route: 065
     Dates: start: 20220323, end: 20220323
  16. DIPHENHYDRAMINE HYDROCHLORIDE [Concomitant]
     Active Substance: DIPHENHYDRAMINE HYDROCHLORIDE
     Indication: Prophylaxis
     Dosage: UNK
     Route: 065
     Dates: start: 20220323, end: 20220323
  17. LOPERAMIDE HYDROCHLORIDE [Concomitant]
     Active Substance: LOPERAMIDE HYDROCHLORIDE
     Indication: Prophylaxis against diarrhoea
     Dosage: UNK
     Route: 065
     Dates: start: 20220323, end: 20220328
  18. DEXAMETHASONE [Concomitant]
     Active Substance: DEXAMETHASONE
     Indication: Prophylaxis
     Dosage: UNK
     Route: 065
     Dates: start: 20220323, end: 20220326
  19. HEPARIN SODIUM [Concomitant]
     Active Substance: HEPARIN SODIUM
     Indication: Surgery
     Dosage: UNK
     Route: 065
     Dates: start: 20220325, end: 20220325
  20. HEPARIN SODIUM [Concomitant]
     Active Substance: HEPARIN SODIUM
     Indication: Prophylaxis
     Dosage: UNK, INJECTION
     Route: 065
     Dates: start: 20220321, end: 20220321
  21. ACETAMINOPHEN [Concomitant]
     Active Substance: ACETAMINOPHEN
     Indication: Pain prophylaxis
     Dosage: UNK
     Route: 065
     Dates: start: 20220321, end: 20220404

REACTIONS (2)
  - Alanine aminotransferase increased [Recovered/Resolved]
  - Aspartate aminotransferase increased [Recovered/Resolved]

NARRATIVE: CASE EVENT DATE: 20220405
